FAERS Safety Report 7059801-6 (Version None)
Quarter: 2010Q4

REPORT INFORMATION
  Report Type: 
  Country: None (occurrence: None)
  Receive Date: 20101025
  Receipt Date: 20101014
  Transmission Date: 20110411
  Serious: Yes (Hospitalization)
  Sender: FDA-Public Use
  Company Number: JP-PFIZER INC-2010134054

PATIENT
  Age: 66 Year
  Sex: Male

DRUGS (1)
  1. LIPITOR [Suspect]
     Dosage: 5 MG, UNKNOWN/D
     Route: 048
     Dates: start: 20100913, end: 20101012

REACTIONS (1)
  - LIVER DISORDER [None]
